FAERS Safety Report 8235416-9 (Version None)
Quarter: 2012Q1

REPORT INFORMATION
  Report Type: 
  Country: None (occurrence: None)
  Receive Date: 20120326
  Receipt Date: 20120315
  Transmission Date: 20120608
  Serious: No
  Sender: FDA-Public Use
  Company Number: US-B.I. PHARMACEUTICALS,INC./RIDGEFIELD-2012-BP-05016BP

PATIENT
  Sex: Female

DRUGS (8)
  1. NYSTATIN [Concomitant]
     Indication: ORAL CANDIDIASIS
     Route: 048
     Dates: start: 20110701
  2. PULMICORT [Concomitant]
     Indication: ASTHMA
     Route: 055
     Dates: start: 20110701
  3. PROAIR HFA [Concomitant]
     Indication: ASTHMA
  4. VITAMIN D [Concomitant]
     Indication: PROPHYLAXIS
     Dates: start: 20100101
  5. PROAIR HFA [Concomitant]
     Indication: CHRONIC OBSTRUCTIVE PULMONARY DISEASE
     Route: 055
     Dates: start: 20070101
  6. LORAZEPAM [Concomitant]
     Indication: ANXIETY
     Route: 048
     Dates: start: 20110101
  7. SPIRIVA [Suspect]
     Indication: EMPHYSEMA
     Dosage: 18 MCG
     Route: 055
     Dates: start: 20120301
  8. DUONEB [Concomitant]
     Indication: BRONCHITIS CHRONIC
     Route: 055
     Dates: start: 20070101

REACTIONS (1)
  - DYSPNOEA [None]
